FAERS Safety Report 6527808-0 (Version None)
Quarter: 2010Q1

REPORT INFORMATION
  Report Type: 
  Country: None (occurrence: None)
  Receive Date: 20100105
  Receipt Date: 20100105
  Transmission Date: 20100710
  Serious: Yes (Hospitalization)
  Sender: FDA-Public Use
  Company Number: None

PATIENT
  Sex: Male
  Weight: 117.9352 kg

DRUGS (1)
  1. IXABEPILONE [Suspect]
     Indication: PROSTATE CANCER
     Dosage: 20MG/M2 WEEKLY X 12 IV
     Route: 042
     Dates: start: 20091109, end: 20091207

REACTIONS (2)
  - BRONCHITIS [None]
  - PNEUMONIA [None]
